FAERS Safety Report 12211947 (Version 1)
Quarter: 2016Q1

REPORT INFORMATION
  Report Type: Report from Study
  Country: AU (occurrence: AU)
  Receive Date: 20160325
  Receipt Date: 20160325
  Transmission Date: 20160526
  Serious: Yes (Other)
  Sender: FDA-Public Use
  Company Number: AU-ABBVIE-16P-008-1589911-00

PATIENT
  Age: 70 Year
  Sex: Male

DRUGS (1)
  1. LUCRIN DEPOT [Suspect]
     Active Substance: LEUPROLIDE ACETATE
     Indication: PROSTATE CANCER
     Route: 065
     Dates: start: 20160129

REACTIONS (5)
  - Metastases to thorax [Unknown]
  - Metastases to lymph nodes [Unknown]
  - Fatigue [Unknown]
  - Metastases to abdominal cavity [Unknown]
  - Malaise [Unknown]

NARRATIVE: CASE EVENT DATE: 20160314
